FAERS Safety Report 14233436 (Version 1)
Quarter: 2017Q4

REPORT INFORMATION
  Report Type: Spontaneous
  Country: US (occurrence: US)
  Receive Date: 20171129
  Receipt Date: 20171129
  Transmission Date: 20180321
  Serious: Yes (Hospitalization)
  Sender: FDA-Public Use
  Company Number: US-PFIZER INC-2017510612

PATIENT
  Age: 55 Year
  Sex: Male
  Weight: 64.86 kg

DRUGS (1)
  1. EFFEXOR XR [Suspect]
     Active Substance: VENLAFAXINE HYDROCHLORIDE

REACTIONS (8)
  - Pain [Unknown]
  - Weight abnormal [Unknown]
  - Pelvic fracture [Recovering/Resolving]
  - Gait disturbance [Recovering/Resolving]
  - Depression [Unknown]
  - Hip fracture [Recovering/Resolving]
  - Nerve compression [Unknown]
  - Self esteem decreased [Unknown]

NARRATIVE: CASE EVENT DATE: 20161202
